FAERS Safety Report 25557264 (Version 1)
Quarter: 2025Q3

REPORT INFORMATION
  Report Type: Spontaneous
  Country: US (occurrence: US)
  Receive Date: 20250715
  Receipt Date: 20250715
  Transmission Date: 20251021
  Serious: No
  Sender: NOVO NORDISK
  Company Number: US-NOVOPROD-1345901

PATIENT
  Sex: Female

DRUGS (3)
  1. OZEMPIC [Suspect]
     Active Substance: SEMAGLUTIDE
     Indication: Glucose tolerance impaired
     Dosage: 0.5 MG, QW
     Route: 058
     Dates: start: 202405
  2. OZEMPIC [Suspect]
     Active Substance: SEMAGLUTIDE
     Indication: Blood cholesterol increased
  3. OZEMPIC [Suspect]
     Active Substance: SEMAGLUTIDE
     Indication: Weight control
     Dosage: DOSE DECREASED
     Route: 058
     Dates: start: 202405

REACTIONS (3)
  - Illness [Recovered/Resolved]
  - Vomiting [Recovered/Resolved]
  - Product use in unapproved indication [Unknown]
